FAERS Safety Report 6626667-5 (Version None)
Quarter: 2010Q1

REPORT INFORMATION
  Report Type: 
  Country: None (occurrence: None)
  Receive Date: 20100305
  Receipt Date: 20100219
  Transmission Date: 20100710
  Serious: Yes (Hospitalization)
  Sender: FDA-Public Use
  Company Number: 1000012181

PATIENT
  Age: 93 Year
  Sex: Female

DRUGS (8)
  1. CITALOPRAM HYDROBROMIDE [Suspect]
     Dosage: 40 MG,ORAL
     Route: 048
     Dates: start: 20090215, end: 20090423
  2. OMEPRAZOLE [Suspect]
     Dosage: 20 MG,ORAL
     Route: 048
  3. COTRIM [Suspect]
     Indication: URINARY TRACT INFECTION
     Dosage: 960 MG,ORAL ; 1920 MG,ORAL
     Route: 048
     Dates: start: 20090417, end: 20090417
  4. COTRIM [Suspect]
     Indication: URINARY TRACT INFECTION
     Dosage: 960 MG,ORAL ; 1920 MG,ORAL
     Route: 048
     Dates: start: 20090418, end: 20090426
  5. ARICEPT [Concomitant]
  6. MELPERON [Concomitant]
  7. MOVICOL [Concomitant]
  8. OXAZEPAM [Concomitant]

REACTIONS (8)
  - BLOOD GLUCOSE INCREASED [None]
  - BLOOD PRESSURE SYSTOLIC INCREASED [None]
  - C-REACTIVE PROTEIN INCREASED [None]
  - DELIRIUM [None]
  - DRUG INTERACTION [None]
  - GASTROENTERITIS [None]
  - HYPONATRAEMIA [None]
  - RESTLESSNESS [None]
